FAERS Safety Report 8496456-8 (Version None)
Quarter: 2012Q3

REPORT INFORMATION
  Report Type: 
  Country: None (occurrence: None)
  Receive Date: 20120709
  Receipt Date: 20120629
  Transmission Date: 20120928
  Serious: Yes (Hospitalization, Other)
  Sender: FDA-Public Use
  Company Number: US-ABBOTT-12P-163-0942090-00

PATIENT
  Age: 59 Year
  Sex: Female

DRUGS (7)
  1. CYMBALTA [Concomitant]
     Indication: NEUROPATHY PERIPHERAL
  2. METOPROLOL [Concomitant]
     Indication: PRODUCT USED FOR UNKNOWN INDICATION
     Dosage: 100 MG (4) TABLETS DAILY
  3. HUMIRA [Suspect]
     Indication: RHEUMATOID ARTHRITIS
     Dates: start: 20060101, end: 20100101
  4. CRESTOR [Concomitant]
     Indication: PRODUCT USED FOR UNKNOWN INDICATION
  5. METFORMIN HCL [Concomitant]
     Indication: PRODUCT USED FOR UNKNOWN INDICATION
     Dosage: 2000 MG DAILY
  6. WARFARIN SODIUM [Concomitant]
     Indication: PRODUCT USED FOR UNKNOWN INDICATION
     Dosage: 2-5MG DAILY (BASED ON WEEKLY BLOOD WORK)
  7. CYMBALTA [Concomitant]
     Indication: DEPRESSION

REACTIONS (12)
  - CARDIAC FAILURE [None]
  - WHITE BLOOD CELL COUNT INCREASED [None]
  - EYELID DISORDER [None]
  - MYOCARDIAL INFARCTION [None]
  - DRY EYE [None]
  - RHEUMATOID ARTHRITIS [None]
  - DYSURIA [None]
  - CARDIOVERSION [None]
  - CONNECTIVE TISSUE DISORDER [None]
  - BLEPHARITIS [None]
  - SKIN EXFOLIATION [None]
  - CARDIAC DISORDER [None]
